FAERS Safety Report 8351915-3 (Version None)
Quarter: 2012Q2

REPORT INFORMATION
  Report Type: 
  Country: None (occurrence: None)
  Receive Date: 20120511
  Receipt Date: 20120504
  Transmission Date: 20120825
  Serious: No
  Sender: FDA-Public Use
  Company Number: US-PFIZER INC-2012079503

PATIENT
  Sex: Male

DRUGS (8)
  1. PRILOSEC [Concomitant]
     Dosage: UNK
  2. PROTONIX [Suspect]
     Dosage: 40 MG, 1X/DAY
     Route: 048
  3. NITROSTAT [Suspect]
     Dosage: 0.4 MG, AS NEEDED
  4. PRAVACHOL [Concomitant]
     Dosage: UNK
  5. PLAVIX [Concomitant]
     Dosage: UNK
  6. NICOTROL [Suspect]
     Dosage: 10 MG, (1 PUFF EVERY 2 HRS)
  7. LOPRESSOR [Concomitant]
     Dosage: UNK
  8. TRICOR [Concomitant]
     Dosage: UNK

REACTIONS (2)
  - ASTHENIA [None]
  - DYSPNOEA [None]
